FAERS Safety Report 8534009-3 (Version None)
Quarter: 2012Q3

REPORT INFORMATION
  Report Type: 
  Country: None (occurrence: None)
  Receive Date: 20120724
  Receipt Date: 20120709
  Transmission Date: 20120928
  Serious: Yes (Other)
  Sender: FDA-Public Use
  Company Number: JP-WATSON-2012-12175

PATIENT
  Age: 26 Year
  Sex: Female
  Weight: 82 kg

DRUGS (2)
  1. PREDNISOLONE [Suspect]
     Indication: DERMATOMYOSITIS
     Dosage: 80 MG, DAILY
     Route: 065
     Dates: start: 20041001
  2. PREDNISOLONE [Suspect]
     Dosage: 15 MG, DAILY
     Route: 065

REACTIONS (2)
  - OSTEOPOROSIS [None]
  - CALCINOSIS [None]
